FAERS Safety Report 5430803-6 (Version None)
Quarter: 2007Q3

REPORT INFORMATION
  Report Type: 
  Country: None (occurrence: None)
  Receive Date: 20070830
  Receipt Date: 20061129
  Transmission Date: 20080115
  Serious: No
  Sender: FDA-Public Use
  Company Number: A0629438A

PATIENT
  Age: 50 Year
  Sex: Female

DRUGS (6)
  1. WELLBUTRIN XL [Suspect]
     Dosage: 150MG PER DAY
     Route: 048
     Dates: start: 20061113, end: 20061124
  2. LEXAPRO [Concomitant]
  3. CELEBREX [Concomitant]
  4. PREVACID [Concomitant]
  5. ESTROGEL [Concomitant]
  6. LEVOTHYROXINE SODIUM [Concomitant]

REACTIONS (1)
  - DIZZINESS [None]
